FAERS Safety Report 4830908-4 (Version None)
Quarter: 2005Q4

REPORT INFORMATION
  Report Type: 
  Country: None (occurrence: None)
  Receive Date: 20051114
  Receipt Date: 20051101
  Transmission Date: 20060501
  Serious: Yes (Hospitalization)
  Sender: FDA-Public Use
  Company Number: CA_051108986

PATIENT
  Age: 74 Year
  Sex: Female
  Weight: 58 kg

DRUGS (5)
  1. FORTEO [Suspect]
     Indication: OSTEOPOROSIS
     Dosage: 20 UG/1 DAY
     Dates: start: 20050824
  2. SYNTHROID (LEVOTHYROXINE SODUM) [Concomitant]
  3. WARFARIN SODIUM [Concomitant]
  4. PREMARIN [Concomitant]
  5. MULTIVITAMINS NOS (MULTIVITAMINS NOS0 [Concomitant]

REACTIONS (1)
  - THROMBOSIS [None]
